FAERS Safety Report 13783057 (Version 3)
Quarter: 2017Q4

REPORT INFORMATION
  Report Type: Report from Study
  Country: CA (occurrence: CA)
  Receive Date: 20170724
  Receipt Date: 20171208
  Transmission Date: 20180320
  Serious: Yes (Life-Threatening, Disabling)
  Sender: FDA-Public Use
  Company Number: CA-TEVA-790391USA

PATIENT
  Age: 70 Year
  Sex: Male

DRUGS (9)
  1. FLUOXETIN [Concomitant]
     Active Substance: FLUOXETINE HYDROCHLORIDE
     Route: 065
  2. SYNRIBO [Suspect]
     Active Substance: OMACETAXINE MEPESUCCINATE
     Indication: CHRONIC MYELOID LEUKAEMIA
     Dosage: 5 MILLIGRAM DAILY; TWO TIMES A DAY X 3 DAYS EVERY 6 WEEKS
     Route: 058
     Dates: start: 2008, end: 201705
  3. INTERFERON [Suspect]
     Active Substance: INTERFERON
     Indication: CHRONIC MYELOID LEUKAEMIA
     Route: 065
     Dates: start: 2000, end: 2001
  4. GLEEVEC [Suspect]
     Active Substance: IMATINIB MESYLATE
     Indication: CHRONIC MYELOID LEUKAEMIA
     Route: 065
     Dates: start: 200511, end: 200705
  5. SPRYCEL [Suspect]
     Active Substance: DASATINIB
     Indication: CHRONIC MYELOID LEUKAEMIA
     Route: 065
     Dates: start: 20070904, end: 20071226
  6. BUPROPION HYDROCHLORIDE. [Concomitant]
     Active Substance: BUPROPION HYDROCHLORIDE
     Route: 065
  7. SPRYCEL [Suspect]
     Active Substance: DASATINIB
     Dates: start: 20070622, end: 20070903
  8. GLEEVEC [Suspect]
     Active Substance: IMATINIB MESYLATE
     Dates: start: 2001, end: 200511
  9. SOLIFENACIN [Concomitant]
     Active Substance: SOLIFENACIN
     Route: 065

REACTIONS (5)
  - Erythroleukaemia [Not Recovered/Not Resolved]
  - Philadelphia chromosome negative [Not Recovered/Not Resolved]
  - Acute myeloid leukaemia [Not Recovered/Not Resolved]
  - Cytogenetic abnormality [Not Recovered/Not Resolved]
  - Pancytopenia [Not Recovered/Not Resolved]

NARRATIVE: CASE EVENT DATE: 20170622
